FAERS Safety Report 18793350 (Version 1)
Quarter: 2021Q1

REPORT INFORMATION
  Report Type: Spontaneous
  Country: US (occurrence: US)
  Receive Date: 20210126
  Receipt Date: 20210126
  Transmission Date: 20210419
  Serious: Yes (Death)
  Sender: FDA-Public Use
  Company Number: None

PATIENT
  Age: 65 Year
  Sex: Male

DRUGS (1)
  1. SAMSCA [Suspect]
     Active Substance: TOLVAPTAN
     Dosage: ?          OTHER FREQUENCY:2 TABLETS DAILY;?
     Route: 048
     Dates: start: 20201118, end: 20210117

REACTIONS (1)
  - Death [None]

NARRATIVE: CASE EVENT DATE: 20210126
